FAERS Safety Report 9799476 (Version 1)
Quarter: 2014Q1

REPORT INFORMATION
  Report Type: Spontaneous
  Country: US (occurrence: US)
  Receive Date: 20140106
  Receipt Date: 20140106
  Transmission Date: 20141002
  Serious: No
  Sender: FDA-Public Use
  Company Number: US-009507513-1401USA001419

PATIENT
  Age: 28 Year
  Sex: Male

DRUGS (8)
  1. CLARITIN-D-24 [Suspect]
     Indication: NASOPHARYNGITIS
     Dosage: UNK, UNKNOWN
     Route: 048
  2. CLARITIN-D-24 [Suspect]
     Indication: SEASONAL ALLERGY
  3. CLARITIN-D-24 [Suspect]
     Indication: SNEEZING
  4. CLARITIN-D-24 [Suspect]
     Indication: PRURITUS
  5. CLARITIN-D-24 [Suspect]
     Indication: LACRIMATION INCREASED
  6. CLARITIN-D-24 [Suspect]
     Indication: SINUS CONGESTION
  7. CLARITIN-D-24 [Suspect]
     Indication: SINUS HEADACHE
  8. CLARITIN-D-24 [Suspect]
     Indication: HEADACHE

REACTIONS (2)
  - Restlessness [Unknown]
  - Insomnia [Unknown]
